FAERS Safety Report 10402228 (Version 1)
Quarter: 2014Q3

REPORT INFORMATION
  Report Type: Spontaneous
  Country: US (occurrence: None)
  Receive Date: 20140820
  Receipt Date: 20140820
  Transmission Date: 20150326
  Serious: Yes (Other)
  Sender: FDA-Public Use
  Company Number: None

PATIENT
  Age: 58 Year
  Sex: Male
  Weight: 79.5 kg

DRUGS (16)
  1. LORAZEPAM. [Concomitant]
     Active Substance: LORAZEPAM
  2. MORPHINE [Concomitant]
     Active Substance: MORPHINE
  3. HEPARIN [Concomitant]
     Active Substance: HEPARIN SODIUM
  4. ACETAMINOPHEN. [Concomitant]
     Active Substance: ACETAMINOPHEN
  5. ENOXAPARIN [Concomitant]
     Active Substance: ENOXAPARIN
  6. OXYCODONE [Concomitant]
     Active Substance: OXYCODONE
  7. PROCHLORPERAZINE. [Concomitant]
     Active Substance: PROCHLORPERAZINE
  8. VANCOMYCIN [Concomitant]
     Active Substance: VANCOMYCIN
  9. CERITINIB [Suspect]
     Active Substance: CERITINIB
     Indication: NON-SMALL CELL LUNG CANCER METASTATIC
     Route: 048
     Dates: start: 20140602, end: 20140608
  10. DEXAMETHASONE. [Concomitant]
     Active Substance: DEXAMETHASONE
  11. NORCO [Concomitant]
     Active Substance: ACETAMINOPHEN\HYDROCODONE BITARTRATE
  12. PANTOPRAZOLE [Concomitant]
     Active Substance: PANTOPRAZOLE SODIUM
  13. OLANZAPINE. [Concomitant]
     Active Substance: OLANZAPINE
  14. ONDANSETRON [Concomitant]
     Active Substance: ONDANSETRON
  15. PROMETHAZINE [Concomitant]
     Active Substance: PROMETHAZINE\PROMETHAZINE HYDROCHLORIDE
  16. IV NOS WITH POTASSIUM [Concomitant]

REACTIONS (3)
  - Hypovolaemia [None]
  - Renal tubular necrosis [None]
  - Renal failure acute [None]

NARRATIVE: CASE EVENT DATE: 20140608
